FAERS Safety Report 9547676 (Version 1)
Quarter: 2013Q2

REPORT INFORMATION
  Report Type: Spontaneous
  Country: US (occurrence: None)
  Receive Date: 20130606
  Receipt Date: 20130606
  Transmission Date: 20140414
  Serious: Yes (Hospitalization)
  Sender: FDA-Public Use
  Company Number: 163-POMAL-13032586

PATIENT
  Age: 59 Year
  Sex: Female

DRUGS (9)
  1. POMALYST [Suspect]
     Indication: PLASMA CELL MYELOMA
     Dosage: 21 IN 21 D
     Dates: start: 20130228
  2. ALLOPURINOL [Concomitant]
  3. BACTRIM DS [Concomitant]
  4. CARVEDILOL [Concomitant]
  5. CIPROFLOXACIN HCL [Concomitant]
  6. COLACE [Concomitant]
  7. DILAUDID [Concomitant]
  8. HUNMALOG [Concomitant]
  9. LANTUS [Concomitant]

REACTIONS (4)
  - Dehydration [None]
  - Pneumonia [None]
  - Nausea [None]
  - Vomiting [None]
